FAERS Safety Report 6077769-6 (Version None)
Quarter: 2009Q1

REPORT INFORMATION
  Report Type: 
  Country: None (occurrence: None)
  Receive Date: 20090213
  Receipt Date: 20090203
  Transmission Date: 20090719
  Serious: Yes (Other)
  Sender: FDA-Public Use
  Company Number: CA-PFIZER INC-2009165279

PATIENT

DRUGS (6)
  1. NORVASC [Suspect]
     Indication: HYPERTENSION
     Route: 048
     Dates: start: 20081101, end: 20090101
  2. PREDNISONE [Concomitant]
     Dosage: UNK
  3. LABETALOL HYDROCHLORIDE [Concomitant]
     Dosage: UNK
  4. OMEPRAZOLE [Concomitant]
     Dosage: UNK
  5. CARBAMAZEPINE [Concomitant]
     Indication: CONVULSION
     Dosage: UNK
  6. VITAMINS [Concomitant]

REACTIONS (3)
  - CARDIAC FAILURE CONGESTIVE [None]
  - JOINT SWELLING [None]
  - LUNG DISORDER [None]
